FAERS Safety Report 7979270-9 (Version None)
Quarter: 2011Q4

REPORT INFORMATION
  Report Type: 
  Country: None (occurrence: None)
  Receive Date: 20111214
  Receipt Date: 20111214
  Transmission Date: 20120403
  Serious: No
  Sender: FDA-Public Use
  Company Number: None

PATIENT
  Sex: Female
  Weight: 70.306 kg

DRUGS (1)
  1. AVELOX [Suspect]
     Indication: BRONCHITIS
     Dosage: ONE TABLET
     Route: 048
     Dates: start: 20111206, end: 20111212

REACTIONS (6)
  - NERVOUSNESS [None]
  - IRRITABILITY [None]
  - DEPRESSION [None]
  - DECREASED APPETITE [None]
  - HYPERSOMNIA [None]
  - TONGUE COATED [None]
